FAERS Safety Report 11314895 (Version 1)
Quarter: 2015Q3

REPORT INFORMATION
  Report Type: Other
  Country: GB (occurrence: GB)
  Receive Date: 20150727
  Receipt Date: 20150727
  Transmission Date: 20151125
  Serious: Yes (Other)
  Sender: FDA-Public Use
  Company Number: GB-MYLANLABS-2015M1023807

PATIENT

DRUGS (4)
  1. FLUCLOXACILLIN [Concomitant]
     Active Substance: FLUCLOXACILLIN
     Dosage: 1DF QID
     Dates: start: 20150506, end: 20150513
  2. OILATUM                            /00103901/ [Concomitant]
     Dosage: USE TWICE WEEKLY
     Dates: start: 20140108
  3. ATORVASTATIN [Suspect]
     Active Substance: ATORVASTATIN
     Dosage: UNK
     Dates: start: 20141001
  4. METRONIDAZOLE. [Concomitant]
     Active Substance: METRONIDAZOLE
     Dosage: 1 DF, TID
     Dates: start: 20150506, end: 20150513

REACTIONS (2)
  - Skin irritation [Unknown]
  - Alopecia [Unknown]

NARRATIVE: CASE EVENT DATE: 20150703
